FAERS Safety Report 10012448 (Version 3)
Quarter: 2014Q3

REPORT INFORMATION
  Report Type: Report from Study
  Country: JP (occurrence: JP)
  Receive Date: 20140314
  Receipt Date: 20140821
  Transmission Date: 20150326
  Serious: Yes (Death, Hospitalization)
  Sender: FDA-Public Use
  Company Number: JP-ACTELION-A-CH2014-96111

PATIENT
  Age: 78 Year
  Sex: Female
  Weight: 42.5 kg

DRUGS (17)
  1. TRACLEER [Suspect]
     Active Substance: BOSENTAN\BOSENTAN MONOHYDRATE
     Indication: PULMONARY HYPERTENSION
     Dosage: 125 MG, BID
     Route: 048
     Dates: start: 20131106, end: 20131126
  2. FERROUS CITRATE [Concomitant]
     Active Substance: FERROUS CITRATE
  3. ALENDRONATE SODIUM. [Concomitant]
     Active Substance: ALENDRONATE SODIUM
  4. OXYGEN. [Concomitant]
     Active Substance: OXYGEN
  5. TRACLEER [Suspect]
     Active Substance: BOSENTAN\BOSENTAN MONOHYDRATE
     Dosage: 62.5 MG, BID
     Route: 048
     Dates: start: 20131023, end: 20131105
  6. ASPIRIN. [Suspect]
     Active Substance: ASPIRIN
     Indication: MYOCARDIAL ISCHAEMIA
     Dosage: 100 MG, UNK
     Route: 048
     Dates: start: 20090803
  7. FUROSEMIDE. [Concomitant]
     Active Substance: FUROSEMIDE
  8. POLYCARBOPHIL CALCIUM [Concomitant]
     Active Substance: CALCIUM POLYCARBOPHIL
  9. NIZATIDINE. [Concomitant]
     Active Substance: NIZATIDINE
  10. TADALAFIL [Concomitant]
     Active Substance: TADALAFIL
  11. BERAPROST SODIUM [Suspect]
     Active Substance: BERAPROST SODIUM
     Indication: PULMONARY HYPERTENSION
     Dosage: 300 ?G, UNK
     Route: 048
     Dates: start: 20090908
  12. BROMHEXINE HYDROCHLORIDE [Concomitant]
     Active Substance: BROMHEXINE HYDROCHLORIDE
  13. BIFIDOBACTERIUM NOS [Concomitant]
  14. SPIRONOLACTONE. [Concomitant]
     Active Substance: SPIRONOLACTONE
  15. PREDNISOLONE. [Concomitant]
     Active Substance: PREDNISOLONE
  16. LOXOPROFEN SODIUM [Concomitant]
     Active Substance: LOXOPROFEN SODIUM
  17. TRACLEER [Suspect]
     Active Substance: BOSENTAN\BOSENTAN MONOHYDRATE
     Dosage: 62.5 MG, BID
     Route: 048
     Dates: start: 20140204, end: 20140527

REACTIONS (6)
  - Depressed level of consciousness [Fatal]
  - Haematoma [Fatal]
  - Subdural haemorrhage [Fatal]
  - Craniotomy [Unknown]
  - Left ventricular failure [Recovering/Resolving]
  - Speech disorder [Fatal]

NARRATIVE: CASE EVENT DATE: 20131126
